FAERS Safety Report 23350743 (Version 1)
Quarter: 2023Q4

REPORT INFORMATION
  Report Type: Spontaneous
  Country: US (occurrence: None)
  Receive Date: 20231228
  Receipt Date: 20231228
  Transmission Date: 20240109
  Serious: Yes (Disabling, Other)
  Sender: FDA-Public Use
  Company Number: None

PATIENT
  Age: 55 Year
  Sex: Male
  Weight: 101.25 kg

DRUGS (2)
  1. SILDENAFIL [Suspect]
     Active Substance: SILDENAFIL
     Indication: Erectile dysfunction
     Dosage: OTHER QUANTITY : 1 CAPSULE(S);?OTHER FREQUENCY : 1 PER WEEK;?
     Route: 048
     Dates: start: 20211202, end: 20230911
  2. DEVICE [Concomitant]
     Active Substance: DEVICE

REACTIONS (2)
  - Optic ischaemic neuropathy [None]
  - Visual impairment [None]

NARRATIVE: CASE EVENT DATE: 20230910
